FAERS Safety Report 6692086-9 (Version None)
Quarter: 2010Q2

REPORT INFORMATION
  Report Type: 
  Country: None (occurrence: None)
  Receive Date: 20100422
  Receipt Date: 20090608
  Transmission Date: 20101027
  Serious: No
  Sender: FDA-Public Use
  Company Number: US-ASTRAZENECA-2009UW14758

PATIENT
  Age: 84 Year
  Sex: Female

DRUGS (1)
  1. TOPROL-XL [Suspect]
     Route: 048
     Dates: start: 20050101

REACTIONS (6)
  - ABDOMINAL DISCOMFORT [None]
  - DRY EYE [None]
  - FATIGUE [None]
  - INSOMNIA [None]
  - NIGHTMARE [None]
  - PERIPHERAL COLDNESS [None]
